FAERS Safety Report 10584543 (Version 4)
Quarter: 2015Q2

REPORT INFORMATION
  Report Type: Spontaneous
  Country: IT (occurrence: IT)
  Receive Date: 20141114
  Receipt Date: 20150408
  Transmission Date: 20150821
  Serious: Yes (Death)
  Sender: FDA-Public Use
  Company Number: IT-MERCK-1411ITA005148

PATIENT
  Age: 51 Year
  Sex: Male
  Weight: 76 kg

DRUGS (11)
  1. PLAVIX [Concomitant]
     Active Substance: CLOPIDOGREL BISULFATE
     Route: 048
  2. HUMALOG [Concomitant]
     Active Substance: INSULIN LISPRO
  3. SEQUACOR [Concomitant]
     Active Substance: BISOPROLOL
     Dosage: UNK
     Route: 048
  4. SUSTIVA [Concomitant]
     Active Substance: EFAVIRENZ
  5. EZETROL 10 MG COMPRESSE [Suspect]
     Active Substance: EZETIMIBE
     Indication: HYPERCHOLESTEROLAEMIA
     Dosage: 10 MG, QD
     Route: 048
     Dates: start: 20140401, end: 20140805
  6. ESAPENT [Concomitant]
     Route: 048
  7. KIVEXA [Concomitant]
     Active Substance: ABACAVIR SULFATE\LAMIVUDINE
     Dosage: UNK
  8. RAMIPRIL. [Concomitant]
     Active Substance: RAMIPRIL
  9. CANDESARTAN CILEXETIL. [Concomitant]
     Active Substance: CANDESARTAN CILEXETIL
  10. CARDIOASPIRIN [Concomitant]
     Active Substance: ASPIRIN
     Route: 048
  11. LANSOPRAZOL RATIOPHARM [Concomitant]
     Active Substance: LANSOPRAZOLE

REACTIONS (3)
  - Back pain [Fatal]
  - Abdominal pain [Fatal]
  - Myalgia [Fatal]

NARRATIVE: CASE EVENT DATE: 20140719
